FAERS Safety Report 21233551 (Version 2)
Quarter: 2022Q4

REPORT INFORMATION
  Report Type: Report from Study
  Country: JP (occurrence: JP)
  Receive Date: 20220819
  Receipt Date: 20221108
  Transmission Date: 20230113
  Serious: Yes (Hospitalization)
  Sender: FDA-Public Use
  Company Number: JP-JT-EVA202200008KERYXP

PATIENT

DRUGS (2)
  1. FERRIC CITRATE ANHYDROUS [Suspect]
     Active Substance: FERRIC CITRATE ANHYDROUS
     Indication: Iron deficiency anaemia
     Dosage: 500 MILLIGRAM, QD
     Route: 048
     Dates: start: 20211227, end: 20220205
  2. CABERGOLINE [Concomitant]
     Active Substance: CABERGOLINE
     Indication: Prophylaxis
     Dosage: UNK
     Route: 048

REACTIONS (2)
  - Foetal death [Recovered/Resolved]
  - Exposure during pregnancy [Unknown]

NARRATIVE: CASE EVENT DATE: 20220128
